FAERS Safety Report 4488457-1 (Version None)
Quarter: 2004Q4

REPORT INFORMATION
  Report Type: 
  Country: None (occurrence: None)
  Receive Date: 20041026
  Receipt Date: 20041012
  Transmission Date: 20050328
  Serious: Yes (Hospitalization)
  Sender: FDA-Public Use
  Company Number: US_010768962

PATIENT
  Age: 18 Year
  Sex: Female
  Weight: 55 kg

DRUGS (3)
  1. HUMALOG [Suspect]
     Dates: start: 20030101, end: 20040101
  2. HUMULIN 70/30 [Suspect]
     Indication: DIABETES MELLITUS
     Dosage: 18 U DAY
     Dates: start: 20001201
  3. HUMULIN R [Suspect]
     Indication: DIABETES MELLITUS
     Dates: end: 20001201

REACTIONS (8)
  - BLOOD GLUCOSE INCREASED [None]
  - CYSTITIS [None]
  - DISORIENTATION [None]
  - FEELING ABNORMAL [None]
  - KETONURIA [None]
  - PHARMACEUTICAL PRODUCT COMPLAINT [None]
  - POLLAKIURIA [None]
  - SLUGGISHNESS [None]
